FAERS Safety Report 8142178-2 (Version None)
Quarter: 2012Q1

REPORT INFORMATION
  Report Type: 
  Country: None (occurrence: None)
  Receive Date: 20120103
  Receipt Date: 20111015
  Transmission Date: 20120608
  Serious: No
  Sender: FDA-Public Use
  Company Number: AE-2011-002378

PATIENT
  Age: 61 Year
  Sex: Female
  Weight: 50.3493 kg

DRUGS (3)
  1. PEGASYS [Concomitant]
  2. RIBAVIRIN [Concomitant]
  3. INCIVEK [Suspect]
     Dosage: 2250 MG (750 MG,3 IN 1 D),ORAL
     Route: 048
     Dates: start: 20110930, end: 20111018

REACTIONS (6)
  - HAEMATOCHEZIA [None]
  - ASTHENIA [None]
  - ABDOMINAL DISTENSION [None]
  - NAUSEA [None]
  - DYSPEPSIA [None]
  - DECREASED APPETITE [None]
